FAERS Safety Report 9379089 (Version 1)
Quarter: 2013Q3

REPORT INFORMATION
  Report Type: Report from Study
  Country: US (occurrence: US)
  Receive Date: 20130702
  Receipt Date: 20130702
  Transmission Date: 20140515
  Serious: Yes (Death)
  Sender: FDA-Public Use
  Company Number: PHEH2013US014026

PATIENT
  Age: 73 Year
  Sex: Female

DRUGS (10)
  1. GLEEVEC [Suspect]
     Indication: GASTRIC CANCER
     Dosage: 400 MG, DAILY
     Route: 048
     Dates: start: 20121201
  2. POTASSIUM [Concomitant]
     Dosage: UNK UKN, UNK
  3. ONDANSETRON HCL [Concomitant]
     Dosage: UNK UKN, UNK
  4. TRAMADOL HYDROCHLORIDE [Concomitant]
     Dosage: UNK UKN, UNK
  5. HYDROCODONE [Concomitant]
     Dosage: UNK UKN, UNK
  6. OMEPRAZOLE [Concomitant]
     Dosage: UNK UKN, UNK
  7. ASPIRIN [Concomitant]
     Dosage: UNK UKN, UNK
  8. CALCIUM [Concomitant]
     Dosage: UNK UKN, UNK
  9. BENICAR [Concomitant]
     Dosage: UNK UKN, UNK
  10. TRICOR [Concomitant]
     Dosage: UNK UKN, UNK

REACTIONS (1)
  - Death [Fatal]
